FAERS Safety Report 13343473 (Version 2)
Quarter: 2017Q1

REPORT INFORMATION
  Report Type: Spontaneous
  Country: CN (occurrence: CN)
  Receive Date: 20170316
  Receipt Date: 20170316
  Transmission Date: 20170428
  Serious: Yes (Other)
  Sender: FDA-Public Use
  Company Number: PHHY2017CN038147

PATIENT
  Age: 60 Year
  Sex: Female

DRUGS (3)
  1. CICLOSPORIN [Suspect]
     Active Substance: CYCLOSPORINE
     Indication: IMMUNE THROMBOCYTOPENIC PURPURA
     Dosage: 300 MG, QD
     Route: 048
     Dates: start: 20150718
  2. METHYLPREDNISOLONE. [Concomitant]
     Active Substance: METHYLPREDNISOLONE
     Indication: PRODUCT USED FOR UNKNOWN INDICATION
     Dosage: UNK
     Route: 048
  3. VINCRISTINE [Concomitant]
     Active Substance: VINCRISTINE
     Indication: PRODUCT USED FOR UNKNOWN INDICATION
     Dosage: 2 MG, UNK
     Route: 041

REACTIONS (6)
  - Headache [Recovered/Resolved]
  - Haematochezia [Recovered/Resolved]
  - Product use issue [Unknown]
  - Blindness transient [Recovered/Resolved]
  - Oropharyngeal pain [Recovered/Resolved]
  - Posterior reversible encephalopathy syndrome [Recovered/Resolved]
